FAERS Safety Report 6922795-5 (Version None)
Quarter: 2010Q3

REPORT INFORMATION
  Report Type: 
  Country: None (occurrence: None)
  Receive Date: 20100813
  Receipt Date: 20100802
  Transmission Date: 20110219
  Serious: Yes (Other)
  Sender: FDA-Public Use
  Company Number: RU-BRISTOL-MYERS SQUIBB COMPANY-15234909

PATIENT
  Age: 65 Year
  Sex: Female

DRUGS (6)
  1. GLUCOPHAGE [Suspect]
     Indication: TYPE 2 DIABETES MELLITUS
     Dosage: 1700MG/DAY
     Dates: start: 20100408, end: 20100507
  2. METFORMIN HCL [Suspect]
     Indication: TYPE 2 DIABETES MELLITUS
     Dosage: 1700MG/DAY
     Dates: start: 20100507, end: 20100713
  3. GLIBENCLAMIDE [Concomitant]
     Route: 048
  4. ENALAPRIL [Concomitant]
     Route: 048
  5. INDAPAMIDE [Concomitant]
     Route: 048
  6. BETAHISTINE [Concomitant]

REACTIONS (4)
  - ERYTHEMA [None]
  - HYPERGLYCAEMIA [None]
  - PRURITUS [None]
  - URTICARIA [None]
